FAERS Safety Report 12080339 (Version 3)
Quarter: 2016Q1

REPORT INFORMATION
  Report Type: Spontaneous
  Country: LB (occurrence: LB)
  Receive Date: 20160216
  Receipt Date: 20160303
  Transmission Date: 20160526
  Serious: Yes (Hospitalization)
  Sender: FDA-Public Use
  Company Number: LB-ABBVIE-16P-093-1560452-00

PATIENT
  Age: 65 Year
  Sex: Male
  Weight: 57 kg

DRUGS (5)
  1. ASPICOT [Concomitant]
     Active Substance: ASPIRIN
     Indication: ANTICOAGULANT THERAPY
     Route: 048
  2. LIPANTHYL [Concomitant]
     Active Substance: FENOFIBRATE
     Indication: HYPERTRIGLYCERIDAEMIA
     Route: 048
  3. KLACID [Suspect]
     Active Substance: CLARITHROMYCIN
     Indication: BRONCHITIS BACTERIAL
     Route: 048
  4. PROPAFENONE HCL [Concomitant]
     Active Substance: PROPAFENONE HYDROCHLORIDE
     Indication: HEART RATE IRREGULAR
     Route: 048
  5. SINTROM [Interacting]
     Active Substance: ACENOCOUMAROL
     Indication: ANTICOAGULANT THERAPY
     Dosage: DAILY DOSE 1MG; FREQUENCY:1/4 TABLET A DAY
     Route: 048

REACTIONS (4)
  - Tonsillitis [Unknown]
  - Drug interaction [Unknown]
  - Blood urine [Unknown]
  - Internal haemorrhage [Unknown]
